FAERS Safety Report 4394127-0 (Version None)
Quarter: 2004Q3

REPORT INFORMATION
  Report Type: 
  Country: None (occurrence: None)
  Receive Date: 20040708
  Receipt Date: 20040708
  Transmission Date: 20050211
  Serious: Yes (Life-Threatening)
  Sender: FDA-Public Use
  Company Number: None

PATIENT
  Age: 45 Year
  Sex: Female

DRUGS (14)
  1. AVONEX [Suspect]
     Indication: MULTIPLE SCLEROSIS
     Dosage: 0.2 ML/22 MCG, THEN 0.5 ML/44 MCG ON 1/23, 26, 29/04
     Dates: start: 20031226
  2. AVONEX [Suspect]
     Indication: MULTIPLE SCLEROSIS
     Dosage: 0.2 ML/22 MCG, THEN 0.5 ML/44 MCG ON 1/23, 26, 29/04
     Dates: start: 20031229
  3. AVONEX [Suspect]
     Indication: MULTIPLE SCLEROSIS
     Dosage: 0.2 ML/22 MCG, THEN 0.5 ML/44 MCG ON 1/23, 26, 29/04
     Dates: start: 20031231
  4. AVONEX [Suspect]
     Indication: MULTIPLE SCLEROSIS
     Dosage: 0.2 ML/22 MCG, THEN 0.5 ML/44 MCG ON 1/23, 26, 29/04
     Dates: start: 20040102
  5. AVONEX [Suspect]
     Indication: MULTIPLE SCLEROSIS
     Dosage: 0.2 ML/22 MCG, THEN 0.5 ML/44 MCG ON 1/23, 26, 29/04
     Dates: start: 20040105
  6. AVONEX [Suspect]
     Indication: MULTIPLE SCLEROSIS
     Dosage: 0.2 ML/22 MCG, THEN 0.5 ML/44 MCG ON 1/23, 26, 29/04
     Dates: start: 20040107
  7. AVONEX [Suspect]
     Indication: MULTIPLE SCLEROSIS
     Dosage: 0.2 ML/22 MCG, THEN 0.5 ML/44 MCG ON 1/23, 26, 29/04
     Dates: start: 20040109
  8. AVONEX [Suspect]
     Indication: MULTIPLE SCLEROSIS
     Dosage: 0.2 ML/22 MCG, THEN 0.5 ML/44 MCG ON 1/23, 26, 29/04
     Dates: start: 20040112
  9. AVONEX [Suspect]
     Indication: MULTIPLE SCLEROSIS
     Dosage: 0.2 ML/22 MCG, THEN 0.5 ML/44 MCG ON 1/23, 26, 29/04
     Dates: start: 20040114
  10. AVONEX [Suspect]
     Indication: MULTIPLE SCLEROSIS
     Dosage: 0.2 ML/22 MCG, THEN 0.5 ML/44 MCG ON 1/23, 26, 29/04
     Dates: start: 20040116
  11. AVONEX [Suspect]
     Indication: MULTIPLE SCLEROSIS
     Dosage: 0.2 ML/22 MCG, THEN 0.5 ML/44 MCG ON 1/23, 26, 29/04
     Dates: start: 20040119
  12. AVONEX [Suspect]
     Indication: MULTIPLE SCLEROSIS
     Dosage: 0.2 ML/22 MCG, THEN 0.5 ML/44 MCG ON 1/23, 26, 29/04
     Dates: start: 20040121
  13. AVONEX [Suspect]
     Indication: MULTIPLE SCLEROSIS
     Dosage: 0.2 ML/22 MCG, THEN 0.5 ML/44 MCG ON 1/23, 26, 29/04
     Dates: start: 20040123
  14. AVONEX [Suspect]
     Indication: MULTIPLE SCLEROSIS
     Dosage: 0.2 ML/22 MCG, THEN 0.5 ML/44 MCG ON 1/23, 26, 29/04
     Dates: start: 20040129

REACTIONS (4)
  - ALANINE AMINOTRANSFERASE INCREASED [None]
  - ASPARTATE AMINOTRANSFERASE INCREASED [None]
  - BLOOD BILIRUBIN INCREASED [None]
  - LIVER DISORDER [None]
